FAERS Safety Report 10549305 (Version 3)
Quarter: 2014Q4

REPORT INFORMATION
  Report Type: Report from Study
  Country: JP (occurrence: JP)
  Receive Date: 20141028
  Receipt Date: 20141112
  Transmission Date: 20150529
  Serious: Yes (Other)
  Sender: FDA-Public Use
  Company Number: JP-GLAXOSMITHKLINE-A201215004

PATIENT
  Age: 85 Year
  Sex: Female
  Weight: 41 kg

DRUGS (14)
  1. ELTROMBOPAG [Suspect]
     Active Substance: ELTROMBOPAG
     Route: 048
     Dates: start: 20120801
  2. MAGNESIUM OXIDE. [Concomitant]
     Active Substance: MAGNESIUM OXIDE
     Route: 048
  3. ELTROMBOPAG [Suspect]
     Active Substance: ELTROMBOPAG
     Indication: IMMUNE THROMBOCYTOPENIC PURPURA
     Route: 048
     Dates: start: 20120323, end: 20120501
  4. ADALAT CC [Concomitant]
     Active Substance: NIFEDIPINE
     Route: 048
  5. PARIET [Concomitant]
     Active Substance: RABEPRAZOLE SODIUM
     Route: 048
  6. PREMINENT [Concomitant]
     Active Substance: HYDROCHLOROTHIAZIDE\LOSARTAN POTASSIUM
     Dosage: UNK
     Route: 048
     Dates: end: 20140328
  7. ALFAROL [Concomitant]
     Active Substance: ALFACALCIDOL
     Route: 048
  8. MARZULENE-S [Concomitant]
     Active Substance: SODIUM GUALENATE
     Route: 048
  9. ASPARA-CA [Concomitant]
     Active Substance: CALCIUM ASPARTATE
     Route: 048
  10. ELTROMBOPAG [Suspect]
     Active Substance: ELTROMBOPAG
     Route: 048
     Dates: start: 20120502, end: 20120605
  11. ELTROMBOPAG [Suspect]
     Active Substance: ELTROMBOPAG
     Route: 048
     Dates: start: 20120606, end: 20120731
  12. GLUCOBAY [Concomitant]
     Active Substance: ACARBOSE
     Route: 048
  13. HUMACART 3/7 [Concomitant]
     Route: 058
  14. IMURAN [Concomitant]
     Active Substance: AZATHIOPRINE
     Indication: IMMUNE THROMBOCYTOPENIC PURPURA
     Route: 048

REACTIONS (3)
  - Pyelonephritis acute [Recovered/Resolved]
  - Liver disorder [Recovered/Resolved]
  - Pneumonia bacterial [Recovered/Resolved]

NARRATIVE: CASE EVENT DATE: 20120606
